FAERS Safety Report 6376221-8 (Version None)
Quarter: 2009Q3

REPORT INFORMATION
  Report Type: 
  Country: None (occurrence: None)
  Receive Date: 20090925
  Receipt Date: 20080530
  Transmission Date: 20100115
  Serious: Yes (Other)
  Sender: FDA-Public Use
  Company Number: US-ASTRAZENECA-2008UW00352

PATIENT
  Age: 44 Year
  Sex: Male
  Weight: 133.8 kg

DRUGS (16)
  1. SEROQUEL [Suspect]
     Indication: BIPOLAR DISORDER
     Route: 048
     Dates: start: 20030101, end: 20060101
  2. SEROQUEL [Suspect]
     Route: 048
     Dates: start: 20030101, end: 20060101
  3. SEROQUEL [Suspect]
     Route: 048
     Dates: start: 20030101, end: 20060101
  4. SEROQUEL [Suspect]
     Dosage: 100 MG
     Route: 048
     Dates: start: 20050113
  5. ZOLOFT [Concomitant]
     Dates: start: 20050101
  6. ZOLOFT [Concomitant]
     Dosage: 50 MG-100 MG
     Dates: start: 20050129
  7. ENALAPRIL MALEATE [Concomitant]
     Dates: start: 20060101
  8. ENALAPRIL MALEATE [Concomitant]
     Dates: start: 20061130
  9. REMERON [Concomitant]
     Dates: start: 20050101, end: 20080101
  10. REMERON [Concomitant]
     Dosage: 15 MG-30 MG
     Dates: start: 20050113
  11. FLONASE [Concomitant]
     Dosage: 0.05%
     Dates: start: 20050126
  12. TRAZODONE HCL [Concomitant]
     Dosage: 50 MG
     Dates: start: 20050407
  13. TRICOR [Concomitant]
     Dosage: 145 MG
     Dates: start: 20050503
  14. ACTOS [Concomitant]
     Dates: start: 20061130
  15. SPIRIVA [Concomitant]
     Dosage: 18 MCG
     Dates: start: 20050503
  16. ASPIRIN [Concomitant]
     Dates: start: 20070525

REACTIONS (6)
  - BLOOD CHOLESTEROL INCREASED [None]
  - BLOOD PRESSURE [None]
  - DIABETIC AUTONOMIC NEUROPATHY [None]
  - DIABETIC VASCULAR DISORDER [None]
  - OBESITY [None]
  - TYPE 2 DIABETES MELLITUS [None]
